FAERS Safety Report 16268872 (Version 1)
Quarter: 2019Q2

REPORT INFORMATION
  Report Type: Spontaneous
  Country: US (occurrence: US)
  Receive Date: 20190503
  Receipt Date: 20190503
  Transmission Date: 20190711
  Serious: Yes (Other)
  Sender: FDA-Public Use
  Company Number: US-REGENERON PHARMACEUTICALS, INC.-2019-28977

PATIENT

DRUGS (2)
  1. ASPIRIN 81 [Suspect]
     Active Substance: ASPIRIN
     Indication: PERIPHERAL VASCULAR DISORDER
     Dosage: TWICE A DAY
  2. EYLEA [Suspect]
     Active Substance: AFLIBERCEPT
     Indication: NEOVASCULAR AGE-RELATED MACULAR DEGENERATION
     Dosage: UNK
     Route: 031

REACTIONS (6)
  - Peripheral vascular disorder [Unknown]
  - Peripheral artery thrombosis [Unknown]
  - Arterial catheterisation [Recovered/Resolved]
  - Eye discharge [Unknown]
  - Pain in extremity [Unknown]
  - Eye haemorrhage [Unknown]
